FAERS Safety Report 25679726 (Version 1)
Quarter: 2025Q3

REPORT INFORMATION
  Report Type: Report from Study
  Country: CA (occurrence: CA)
  Receive Date: 20250814
  Receipt Date: 20250814
  Transmission Date: 20251020
  Serious: Yes (Hospitalization, Other)
  Sender: NORDIC PHARMA
  Company Number: CA-NORDICGR-063618

PATIENT
  Age: 50 Year
  Sex: Female
  Weight: 104 kg

DRUGS (16)
  1. METHOTREXATE [Suspect]
     Active Substance: METHOTREXATE
     Indication: Arthralgia
  2. METHOTREXATE [Suspect]
     Active Substance: METHOTREXATE
     Indication: Arthralgia
  3. METHOTREXATE [Suspect]
     Active Substance: METHOTREXATE
     Indication: Arthralgia
  4. METHOTREXATE [Suspect]
     Active Substance: METHOTREXATE
     Indication: Arthralgia
  5. ASPIRIN [Concomitant]
     Active Substance: ASPIRIN
     Indication: Product used for unknown indication
     Route: 048
  6. ROSUVASTATIN [Concomitant]
     Active Substance: ROSUVASTATIN
     Indication: Blood cholesterol abnormal
     Dosage: 1 EVERY 24 HOURS
     Route: 048
  7. ROSUVASTATIN [Concomitant]
     Active Substance: ROSUVASTATIN
     Indication: Blood cholesterol abnormal
     Dosage: 1 EVERY 24 HOURS
     Route: 048
  8. CELEBREX [Concomitant]
     Active Substance: CELECOXIB
     Indication: Product used for unknown indication
     Route: 065
  9. FOLIC ACID [Concomitant]
     Active Substance: FOLIC ACID
     Indication: Arthralgia
     Route: 065
  10. SILIQ [Concomitant]
     Active Substance: BRODALUMAB
     Indication: Psoriasis
     Dosage: 1 EVERY 2 WEEKS
     Route: 058
  11. SILIQ [Concomitant]
     Active Substance: BRODALUMAB
     Indication: Psoriasis
     Dosage: 1 EVERY 1 WEEKS
     Route: 058
  12. CLOPIDOGREL [Concomitant]
     Active Substance: CLOPIDOGREL BISULFATE
     Indication: Product used for unknown indication
     Route: 048
  13. CELECOXIB [Concomitant]
     Active Substance: CELECOXIB
     Indication: Product used for unknown indication
     Dosage: 1 EVERY 12 HOURS
     Route: 048
  14. MEDROXYPROGESTERONE [Concomitant]
     Active Substance: MEDROXYPROGESTERONE
     Indication: Product used for unknown indication
     Route: 065
  15. BISOPROLOL [Concomitant]
     Active Substance: BISOPROLOL
     Indication: Product used for unknown indication
     Route: 048
  16. REPATHA [Concomitant]
     Active Substance: EVOLOCUMAB
     Indication: Product used for unknown indication

REACTIONS (21)
  - Onychalgia [Not Recovered/Not Resolved]
  - Injection site urticaria [Not Recovered/Not Resolved]
  - Endodontic procedure [Not Recovered/Not Resolved]
  - Meniscus injury [Unknown]
  - Injection site mass [Not Recovered/Not Resolved]
  - Stress [Not Recovered/Not Resolved]
  - Psoriasis [Not Recovered/Not Resolved]
  - Skin laceration [Not Recovered/Not Resolved]
  - Blood pressure increased [Not Recovered/Not Resolved]
  - Injection site pain [Not Recovered/Not Resolved]
  - Drug ineffective for unapproved indication [Not Recovered/Not Resolved]
  - Body temperature decreased [Not Recovered/Not Resolved]
  - Injection site bruising [Not Recovered/Not Resolved]
  - Anxiety [Not Recovered/Not Resolved]
  - Liver function test increased [Not Recovered/Not Resolved]
  - Gait disturbance [Not Recovered/Not Resolved]
  - Coronary artery occlusion [Not Recovered/Not Resolved]
  - Hepatic lesion [Not Recovered/Not Resolved]
  - Polyp [Not Recovered/Not Resolved]
  - Fall [Not Recovered/Not Resolved]
  - Feeling abnormal [Not Recovered/Not Resolved]
